FAERS Safety Report 9341017 (Version 2)
Quarter: 2013Q2

REPORT INFORMATION
  Report Type: Spontaneous
  Country: JP (occurrence: JP)
  Receive Date: 20130610
  Receipt Date: 20130619
  Transmission Date: 20140414
  Serious: Yes (Death, Hospitalization)
  Sender: FDA-Public Use
  Company Number: JP-B.I. PHARMACEUTICALS,INC./RIDGEFIELD-2013-BI-16226NB

PATIENT
  Age: 64 Year
  Sex: Male

DRUGS (1)
  1. PRAZAXA [Suspect]
     Dosage: 220 MG
     Route: 048
     Dates: end: 20121225

REACTIONS (2)
  - Respiratory failure [Fatal]
  - Interstitial lung disease [Fatal]
